FAERS Safety Report 5449475-X (Version None)
Quarter: 2007Q3

REPORT INFORMATION
  Report Type: 
  Country: None (occurrence: None)
  Receive Date: 20070907
  Receipt Date: 20070823
  Transmission Date: 20080115
  Serious: Yes (Death, Other)
  Sender: FDA-Public Use
  Company Number: 2007RR-09198

PATIENT
  Age: 67 Year
  Sex: Female

DRUGS (2)
  1. ASPIRIN [Suspect]
     Dosage: ORAL
     Route: 048
  2. IBUPROFEN [Suspect]
     Dosage: ORAL
     Route: 048

REACTIONS (5)
  - CARDIAC ARREST [None]
  - CONFUSIONAL STATE [None]
  - DEAFNESS [None]
  - HYPERVENTILATION [None]
  - MULTIPLE DRUG OVERDOSE [None]
